FAERS Safety Report 25786919 (Version 1)
Quarter: 2025Q3

REPORT INFORMATION
  Report Type: Spontaneous
  Country: US (occurrence: US)
  Receive Date: 20250910
  Receipt Date: 20250910
  Transmission Date: 20251020
  Serious: No
  Sender: ANI
  Company Number: US-ANIPHARMA-2025-US-015250

PATIENT
  Age: 31 Year
  Sex: Male

DRUGS (3)
  1. CORTICOTROPIN [Suspect]
     Active Substance: CORTICOTROPIN
     Indication: Iridocyclitis
     Route: 058
  2. VITAMINS [Concomitant]
     Active Substance: VITAMINS
  3. ECK EYE DROPS [Concomitant]

REACTIONS (1)
  - Injection site nodule [Unknown]
